FAERS Safety Report 7901407-8 (Version None)
Quarter: 2011Q4

REPORT INFORMATION
  Report Type: 
  Country: None (occurrence: None)
  Receive Date: 20111108
  Receipt Date: 20111106
  Transmission Date: 20120403
  Serious: Yes (Other)
  Sender: FDA-Public Use
  Company Number: US-PFIZER INC-2011245308

PATIENT
  Sex: Female
  Weight: 68.934 kg

DRUGS (1)
  1. CHANTIX [Suspect]
     Indication: SMOKING CESSATION THERAPY
     Dosage: 0.5 MG, 1X/DAY
     Route: 048
     Dates: start: 20110812, end: 20110101

REACTIONS (11)
  - AGITATION [None]
  - NAUSEA [None]
  - TREMOR [None]
  - NERVOUSNESS [None]
  - TYMPANIC MEMBRANE PERFORATION [None]
  - DIZZINESS [None]
  - BOREDOM [None]
  - WEIGHT INCREASED [None]
  - ERYTHEMA [None]
  - FEELING ABNORMAL [None]
  - INSOMNIA [None]
